FAERS Safety Report 7506455-8 (Version None)
Quarter: 2011Q2

REPORT INFORMATION
  Report Type: 
  Country: None (occurrence: None)
  Receive Date: 20110519
  Receipt Date: 20110418
  Transmission Date: 20111010
  Serious: Yes (Death, Hospitalization)
  Sender: FDA-Public Use
  Company Number: 2011S1000035

PATIENT
  Age: 55 Year
  Sex: Male

DRUGS (3)
  1. KRYSTEXXA [Suspect]
     Indication: GOUT
     Dosage: 8 MG; X1; IV
     Route: 042
     Dates: start: 20110401, end: 20110401
  2. KRYSTEXXA [Suspect]
     Indication: GOUT
     Dosage: 8 MG; X1; IV
     Route: 042
     Dates: start: 20110301, end: 20110301
  3. KRYSTEXXA [Suspect]
     Indication: GOUT
     Dosage: 8 MG; X1; IV
     Route: 042
     Dates: start: 20110101, end: 20110101

REACTIONS (3)
  - OSTEOMYELITIS [None]
  - SEPSIS [None]
  - CARDIAC FAILURE CONGESTIVE [None]
